FAERS Safety Report 23375977 (Version 1)
Quarter: 2024Q1

REPORT INFORMATION
  Report Type: Spontaneous
  Country: SE (occurrence: SE)
  Receive Date: 20240108
  Receipt Date: 20240108
  Transmission Date: 20240409
  Serious: Yes (Other)
  Sender: FDA-Public Use
  Company Number: None

PATIENT
  Age: 32 Year
  Sex: Female
  Weight: 54 kg

DRUGS (1)
  1. LISDEXAMFETAMINE DIMESYLATE [Suspect]
     Active Substance: LISDEXAMFETAMINE DIMESYLATE
     Indication: Attention deficit hyperactivity disorder
     Dosage: 50 MILLIGRAM, QD
     Route: 048
     Dates: start: 20220913, end: 20230419

REACTIONS (3)
  - Carbuncle [Recovered/Resolved with Sequelae]
  - Scar [Recovered/Resolved with Sequelae]
  - Dermatillomania [Recovered/Resolved with Sequelae]

NARRATIVE: CASE EVENT DATE: 20220925
